FAERS Safety Report 4994763-4 (Version None)
Quarter: 2006Q1

REPORT INFORMATION
  Report Type: 
  Country: None (occurrence: None)
  Receive Date: 20060313
  Receipt Date: 20050729
  Transmission Date: 20060701
  Serious: Yes (Other)
  Sender: FDA-Public Use
  Company Number: PHEH2005US06507

PATIENT
  Age: 59 Year
  Sex: Female
  Weight: 68.9 kg

DRUGS (5)
  1. TRILEPTAL [Suspect]
     Indication: EPILEPSY
     Dosage: 450 MG,BID,ORAL
     Route: 048
  2. DILANTIN /AUS/(PHENYTOIN SODIUM) [Concomitant]
  3. LAMICTAL [Concomitant]
  4. PROZAC [Concomitant]
  5. KLONOPIN [Concomitant]

REACTIONS (1)
  - HYPONATRAEMIA [None]
